FAERS Safety Report 9759639 (Version 2)
Quarter: 2014Q1

REPORT INFORMATION
  Report Type: Spontaneous
  Country: TR (occurrence: TR)
  Receive Date: 20131216
  Receipt Date: 20140114
  Transmission Date: 20141002
  Serious: Yes (Other)
  Sender: FDA-Public Use
  Company Number: TR-BAYER-2013-149011

PATIENT
  Age: 49 Year
  Sex: Male
  Weight: 170 kg

DRUGS (1)
  1. ASPIRIN [Suspect]
     Dosage: 100 MG, QD

REACTIONS (2)
  - Haemorrhage [None]
  - Varicose vein [None]
